FAERS Safety Report 24089254 (Version 2)
Quarter: 2024Q3

REPORT INFORMATION
  Report Type: Spontaneous
  Country: GB (occurrence: GB)
  Receive Date: 20240715
  Receipt Date: 20240902
  Transmission Date: 20241017
  Serious: Yes (Hospitalization, Disabling, Other)
  Sender: AUROBINDO
  Company Number: GB-MHRA-MED-202405141317487200-VGRFY

PATIENT
  Age: 67 Year
  Sex: Female

DRUGS (1)
  1. MIRTAZAPINE [Suspect]
     Active Substance: MIRTAZAPINE
     Indication: Somnolence
     Dosage: 45 MILLIGRAM
     Route: 065
     Dates: start: 20030305

REACTIONS (29)
  - Medication error [Unknown]
  - Anosmia [Not Recovered/Not Resolved]
  - Ageusia [Not Recovered/Not Resolved]
  - Weight decreased [Unknown]
  - Amnesia [Unknown]
  - Insomnia [Unknown]
  - Poor quality sleep [Unknown]
  - Hypoaesthesia [Unknown]
  - Pharyngeal hypoaesthesia [Unknown]
  - Electric shock sensation [Unknown]
  - Paraesthesia [Unknown]
  - Feeling hot [Unknown]
  - Sleep terror [Unknown]
  - Night sweats [Unknown]
  - Tearfulness [Unknown]
  - Irritability [Unknown]
  - Fatigue [Unknown]
  - Head discomfort [Not Recovered/Not Resolved]
  - Hypertension [Unknown]
  - Dizziness postural [Unknown]
  - Hypoacusis [Unknown]
  - Deafness [Unknown]
  - Neuralgia [Unknown]
  - Feeling of body temperature change [Unknown]
  - Nasal dryness [Unknown]
  - Nasal discomfort [Unknown]
  - Dry throat [Unknown]
  - Oropharyngeal pain [Unknown]
  - Oropharyngeal discomfort [Unknown]
